FAERS Safety Report 7931535-2 (Version None)
Quarter: 2011Q4

REPORT INFORMATION
  Report Type: 
  Country: None (occurrence: None)
  Receive Date: 20111121
  Receipt Date: 20111121
  Transmission Date: 20120403
  Serious: No
  Sender: FDA-Public Use
  Company Number: None

PATIENT

DRUGS (1)
  1. EDARBI [Suspect]
     Indication: HYPERTENSION
     Dosage: 80MG
     Route: 048
     Dates: start: 20111011, end: 20111111

REACTIONS (4)
  - NECK PAIN [None]
  - FEELING JITTERY [None]
  - HEADACHE [None]
  - ABDOMINAL PAIN [None]
